FAERS Safety Report 10755677 (Version 1)
Quarter: 2015Q1

REPORT INFORMATION
  Report Type: Spontaneous
  Country: US (occurrence: None)
  Receive Date: 20150123
  Receipt Date: 20150123
  Transmission Date: 20150721
  Serious: No
  Sender: FDA-Public Use
  Company Number: 2014TUS010431

PATIENT
  Age: 43 Year
  Sex: Male
  Weight: 74.8 kg

DRUGS (3)
  1. LIALDA (MESALAZINE) [Concomitant]
  2. ENTYVIO [Suspect]
     Active Substance: VEDOLIZUMAB
     Indication: COLITIS ULCERATIVE
     Dosage: 4.8 ML STERILE H2O IN 250 ML NS/IV 60 MIN
     Route: 042
     Dates: start: 20141021
  3. IMURAN /00001501/ (AZATHIOPRINE) [Concomitant]

REACTIONS (3)
  - Incorrect drug administration duration [None]
  - Feeling jittery [None]
  - Nervousness [None]

NARRATIVE: CASE EVENT DATE: 20141021
